FAERS Safety Report 5637308-8 (Version None)
Quarter: 2008Q1

REPORT INFORMATION
  Report Type: 
  Country: None (occurrence: None)
  Receive Date: 20080219
  Receipt Date: 20080204
  Transmission Date: 20080703
  Serious: Yes (Hospitalization)
  Sender: FDA-Public Use
  Company Number: 2008003106

PATIENT
  Age: 67 Year
  Sex: Male
  Weight: 73.4827 kg

DRUGS (2)
  1. VISINE EYE DROPS [Suspect]
     Dosage: PUT IN DRINK, ONCE, ORAL
     Route: 048
  2. OXYCONTIN [Concomitant]

REACTIONS (7)
  - ACCIDENTAL EXPOSURE [None]
  - DISORIENTATION [None]
  - DISTURBANCE IN ATTENTION [None]
  - FEELING ABNORMAL [None]
  - ILL-DEFINED DISORDER [None]
  - MEMORY IMPAIRMENT [None]
  - THINKING ABNORMAL [None]
